FAERS Safety Report 9157676 (Version 2)
Quarter: 2013Q2

REPORT INFORMATION
  Report Type: Spontaneous
  Country: FR (occurrence: FR)
  Receive Date: 20130312
  Receipt Date: 20130408
  Transmission Date: 20140414
  Serious: Yes (Other)
  Sender: FDA-Public Use
  Company Number: PHHY2013FR023521

PATIENT
  Age: 82 Year
  Sex: Female
  Weight: 83 kg

DRUGS (6)
  1. TRAMADOL [Suspect]
     Dosage: 1 DF, TOTAL
     Route: 048
     Dates: start: 20130208
  2. LAMALINE [Suspect]
     Indication: ACCIDENTAL EXPOSURE TO PRODUCT
     Dosage: 2 DF, TOTAL
     Route: 048
     Dates: start: 20130208
  3. ZANIDIP [Suspect]
     Indication: ACCIDENTAL EXPOSURE TO PRODUCT
     Dosage: 1 DF, TOTAL
     Route: 048
     Dates: start: 20130208
  4. REMINYL [Suspect]
     Indication: ACCIDENTAL EXPOSURE TO PRODUCT
     Dosage: 1 DF, TOTAL
     Route: 048
     Dates: start: 20130208
  5. SERC [Concomitant]
  6. DOLIPRANE [Concomitant]

REACTIONS (5)
  - Wrong drug administered [Unknown]
  - Medication error [Unknown]
  - Vomiting [Recovered/Resolved]
  - Dizziness [Recovered/Resolved]
  - Hyperhidrosis [Recovered/Resolved]
